FAERS Safety Report 12846195 (Version 2)
Quarter: 2016Q4

REPORT INFORMATION
  Report Type: Report from Study
  Country: GB (occurrence: GB)
  Receive Date: 20161014
  Receipt Date: 20161221
  Transmission Date: 20170207
  Serious: Yes (Death, Hospitalization, Other)
  Sender: FDA-Public Use
  Company Number: GB-AMGEN-GBRNI2016140783

PATIENT
  Age: 74 Year
  Sex: Male

DRUGS (2)
  1. SULPHASALAZINE [Concomitant]
     Active Substance: SULFASALAZINE
     Indication: RHEUMATOID ARTHRITIS
     Dosage: UNK
  2. ETANERCEPT [Suspect]
     Active Substance: ETANERCEPT
     Indication: RHEUMATOID ARTHRITIS
     Dosage: UNK
     Route: 058
     Dates: end: 20150930

REACTIONS (7)
  - Chronic obstructive pulmonary disease [Fatal]
  - Cellulitis [Fatal]
  - Nephrotic syndrome [Fatal]
  - Clostridium difficile infection [Fatal]
  - Pulmonary oedema [Fatal]
  - Nephropathy [Fatal]
  - Urinary tract infection [Fatal]

NARRATIVE: CASE EVENT DATE: 20151120
